FAERS Safety Report 18483904 (Version 3)
Quarter: 2020Q4

REPORT INFORMATION
  Report Type: Report from Study
  Country: None (occurrence: US)
  Receive Date: 20201109
  Receipt Date: 20201217
  Transmission Date: 20210114
  Serious: Yes (Other)
  Sender: FDA-Public Use
  Company Number: US-ABBVIE-20K-163-3641152-00

PATIENT
  Age: 67 Year
  Sex: Female
  Weight: 43.13 kg

DRUGS (3)
  1. RINVOQ [Suspect]
     Active Substance: UPADACITINIB
     Indication: BLOOD OSMOLARITY DECREASED
     Route: 048
     Dates: start: 202002, end: 20200529
  2. RINVOQ [Suspect]
     Active Substance: UPADACITINIB
     Indication: HYPONATRAEMIA
     Route: 048
     Dates: start: 202006
  3. RINVOQ [Suspect]
     Active Substance: UPADACITINIB
     Indication: RHEUMATOID ARTHRITIS

REACTIONS (6)
  - Peripheral swelling [Not Recovered/Not Resolved]
  - Spinal operation [Unknown]
  - Inflammatory marker increased [Unknown]
  - Hypoaesthesia [Not Recovered/Not Resolved]
  - Paraesthesia [Recovered/Resolved]
  - Spinal operation [Unknown]

NARRATIVE: CASE EVENT DATE: 2020
